FAERS Safety Report 17714120 (Version 1)
Quarter: 2020Q2

REPORT INFORMATION
  Report Type: Report from Study
  Country: GB (occurrence: GB)
  Receive Date: 20200427
  Receipt Date: 20200427
  Transmission Date: 20200714
  Serious: Yes (Other)
  Sender: FDA-Public Use
  Company Number: GB-PFIZER INC-2020162583

PATIENT
  Sex: Female

DRUGS (2)
  1. GABAPENTIN. [Suspect]
     Active Substance: GABAPENTIN
     Dosage: UNK
     Route: 065
  2. COPAXONE [Suspect]
     Active Substance: GLATIRAMER ACETATE
     Dosage: 20 MG/ML, DAILY
     Route: 058

REACTIONS (6)
  - Injection site mass [Unknown]
  - Discomfort [Unknown]
  - Rash macular [Unknown]
  - Pruritus [Unknown]
  - Peripheral nerve injury [Unknown]
  - Injection site pruritus [Unknown]
